FAERS Safety Report 9109510 (Version 1)
Quarter: 2013Q1

REPORT INFORMATION
  Report Type: Spontaneous
  Country: IT (occurrence: IT)
  Receive Date: 20130222
  Receipt Date: 20130222
  Transmission Date: 20140127
  Serious: Yes (Hospitalization)
  Sender: FDA-Public Use
  Company Number: IT-BAYER-2013-018964

PATIENT
  Age: 70 Year
  Sex: Male

DRUGS (1)
  1. NEXAVAR [Suspect]
     Indication: RENAL NEOPLASM
     Dosage: DAILY DOSE 800 MG
     Route: 048
     Dates: start: 20120205, end: 20130118

REACTIONS (2)
  - Pneumonia [Recovered/Resolved]
  - Arthritis bacterial [Recovered/Resolved]
